FAERS Safety Report 9857174 (Version 1)
Quarter: 2014Q1

REPORT INFORMATION
  Report Type: Spontaneous
  Country: US (occurrence: US)
  Receive Date: 20140130
  Receipt Date: 20140130
  Transmission Date: 20141002
  Serious: Yes (Life-Threatening, Hospitalization, Other)
  Sender: FDA-Public Use
  Company Number: US-ACTAVIS-2014-00870

PATIENT
  Age: 15 Year
  Sex: Female

DRUGS (3)
  1. METFORMIN HYDROCHLORIDE (AELLC) [Suspect]
     Indication: INTENTIONAL OVERDOSE
     Dosage: 75 G, TOTAL
     Route: 048
  2. QUETIAPINE FUMARATE [Suspect]
     Indication: MAJOR DEPRESSION
     Dosage: 3 G, TOTAL
     Route: 048
  3. QUETIAPINE FUMARATE [Suspect]
     Indication: INTENTIONAL OVERDOSE

REACTIONS (7)
  - Lactic acidosis [Recovered/Resolved]
  - Hypoglycaemia [Recovered/Resolved]
  - Hypotension [Unknown]
  - Somnolence [Recovering/Resolving]
  - Vomiting [Unknown]
  - Nausea [Unknown]
  - Intentional overdose [Unknown]
